FAERS Safety Report 4948953-7 (Version None)
Quarter: 2006Q1

REPORT INFORMATION
  Report Type: 
  Country: None (occurrence: None)
  Receive Date: 20060321
  Receipt Date: 20060310
  Transmission Date: 20060701
  Serious: Yes (Hospitalization, Other)
  Sender: FDA-Public Use
  Company Number: PHHO2006BR04318

PATIENT
  Sex: Female

DRUGS (5)
  1. FORASEQ [Suspect]
     Indication: ASTHMA
     Dosage: 12/400 UG, UNK
     Dates: start: 20031201
  2. FORASEQ [Suspect]
     Dosage: 12/200 UG, UNK
     Dates: end: 20060209
  3. ALDOMET [Concomitant]
     Indication: HYPERTENSION
  4. LOSARTAN POTASSIUM [Concomitant]
     Indication: HYPERTENSION
  5. GLIOTEN [Concomitant]
     Indication: HYPERTENSION

REACTIONS (8)
  - BRONCHITIS [None]
  - COUGH [None]
  - DYSPHONIA [None]
  - ECCHYMOSIS [None]
  - LUNG NEOPLASM MALIGNANT [None]
  - LUNG NEOPLASM SURGERY [None]
  - THROAT IRRITATION [None]
  - VIRAL INFECTION [None]
